FAERS Safety Report 16717682 (Version 2)
Quarter: 2019Q3

REPORT INFORMATION
  Report Type: Spontaneous
  Country: US (occurrence: US)
  Receive Date: 20190819
  Receipt Date: 20190918
  Transmission Date: 20191005
  Serious: No
  Sender: FDA-Public Use
  Company Number: US-SA-2019SA229077

PATIENT
  Age: 32 Year
  Sex: Female

DRUGS (2)
  1. KEVZARA [Suspect]
     Active Substance: SARILUMAB
     Indication: PSORIATIC ARTHROPATHY
     Dosage: 150 MG, QOW
     Route: 058
     Dates: start: 20190225
  2. KEVZARA [Suspect]
     Active Substance: SARILUMAB
     Indication: RHEUMATOID ARTHRITIS

REACTIONS (5)
  - Pain [Unknown]
  - Product use in unapproved indication [Unknown]
  - Musculoskeletal discomfort [Unknown]
  - Limb discomfort [Unknown]
  - Injection site swelling [Unknown]

NARRATIVE: CASE EVENT DATE: 201902
